FAERS Safety Report 5545324-X (Version None)
Quarter: 2007Q4

REPORT INFORMATION
  Report Type: 
  Country: None (occurrence: None)
  Receive Date: 20071207
  Receipt Date: 20071207
  Transmission Date: 20080405
  Serious: Yes (Hospitalization)
  Sender: FDA-Public Use
  Company Number: None

PATIENT
  Age: 47 Year
  Sex: Male
  Weight: 62.5964 kg

DRUGS (18)
  1. CETUXIMAB 250MG/M2 [Suspect]
     Indication: NEOPLASM MALIGNANT
     Dosage: 250MG/M2
     Dates: start: 20070611
  2. CETUXIMAB 250MG/M2 [Suspect]
     Indication: NEOPLASM MALIGNANT
     Dosage: 250MG/M2
     Dates: start: 20070618
  3. CETUXIMAB 250MG/M2 [Suspect]
     Indication: NEOPLASM MALIGNANT
     Dosage: 250MG/M2
     Dates: start: 20070625
  4. CETUXIMAB 250MG/M2 [Suspect]
     Indication: NEOPLASM MALIGNANT
     Dosage: 250MG/M2
     Dates: start: 20070702
  5. CETUXIMAB 250MG/M2 [Suspect]
     Indication: NEOPLASM MALIGNANT
     Dosage: 250MG/M2
     Dates: start: 20070709
  6. CETUXIMAB 250MG/M2 [Suspect]
     Indication: NEOPLASM MALIGNANT
     Dosage: 250MG/M2
     Dates: start: 20070716
  7. CETUXIMAB 250MG/M2 [Suspect]
     Indication: NEOPLASM MALIGNANT
     Dosage: 250MG/M2
     Dates: start: 20070723
  8. CETUXIMAB 250MG/M2 [Suspect]
     Indication: NEOPLASM MALIGNANT
     Dosage: 250MG/M2
     Dates: start: 20070730
  9. TAXOL [Suspect]
     Dosage: 40MG/M2
     Dates: start: 20070611
  10. TAXOL [Suspect]
     Dosage: 40MG/M2
     Dates: start: 20070618
  11. TAXOL [Suspect]
     Dosage: 40MG/M2
     Dates: start: 20070625
  12. TAXOL [Suspect]
     Dosage: 40MG/M2
     Dates: start: 20070702
  13. TAXOL [Suspect]
     Dosage: 40MG/M2
     Dates: start: 20070730
  14. CARBOPLATIN [Suspect]
     Dates: start: 20070611
  15. CARBOPLATIN [Suspect]
     Dates: start: 20070618
  16. CARBOPLATIN [Suspect]
     Dates: start: 20070625
  17. CARBOPLATIN [Suspect]
     Dates: start: 20070702
  18. CARBOPLATIN [Suspect]
     Dates: start: 20070730

REACTIONS (7)
  - AORTIC VALVE INCOMPETENCE [None]
  - ASTHENIA [None]
  - DEVICE RELATED INFECTION [None]
  - INFUSION SITE ERYTHEMA [None]
  - INFUSION SITE PAIN [None]
  - INFUSION SITE SWELLING [None]
  - STAPHYLOCOCCAL INFECTION [None]
